FAERS Safety Report 8524325-3 (Version None)
Quarter: 2012Q3

REPORT INFORMATION
  Report Type: 
  Country: None (occurrence: None)
  Receive Date: 20120720
  Receipt Date: 20120711
  Transmission Date: 20120928
  Serious: No
  Sender: FDA-Public Use
  Company Number: US-B.I. PHARMACEUTICALS,INC./RIDGEFIELD-2012-BP-15615BP

PATIENT
  Age: 63 Year
  Sex: Female

DRUGS (3)
  1. SYNTHROID [Concomitant]
     Indication: THYROIDECTOMY
     Route: 048
     Dates: start: 20090101
  2. SPIRIVA [Suspect]
     Indication: OXYGEN SATURATION DECREASED
     Dosage: 18 MCG
     Route: 055
     Dates: start: 20120622
  3. OXYGEN [Concomitant]
     Indication: OXYGEN SATURATION DECREASED

REACTIONS (1)
  - BONE PAIN [None]
